FAERS Safety Report 6024800-X (Version None)
Quarter: 2008Q4

REPORT INFORMATION
  Report Type: 
  Country: None (occurrence: None)
  Receive Date: 20081231
  Receipt Date: 20081226
  Transmission Date: 20090506
  Serious: Yes (Life-Threatening, Disabling)
  Sender: FDA-Public Use
  Company Number: JP-BRISTOL-MYERS SQUIBB COMPANY-14456248

PATIENT
  Age: 77 Year
  Sex: Male

DRUGS (3)
  1. TAXOL [Suspect]
     Indication: GASTRIC CANCER
     Dosage: 19-JUN-2006 2ND COURSE, 28-JUN-2006, 3RD COURSE
     Route: 041
     Dates: start: 20060606, end: 20060606
  2. MAGNESIUM OXIDE [Concomitant]
     Route: 048
     Dates: start: 20060609, end: 20060703
  3. PURSENNID [Concomitant]
     Route: 048
     Dates: start: 20060611, end: 20060703

REACTIONS (1)
  - PNEUMOTHORAX [None]
